FAERS Safety Report 11041948 (Version 2)
Quarter: 2015Q2

REPORT INFORMATION
  Report Type: Spontaneous
  Country: US (occurrence: US)
  Receive Date: 20150416
  Receipt Date: 20150525
  Transmission Date: 20150821
  Serious: No
  Sender: FDA-Public Use
  Company Number: US-JNJFOC-20130312255

PATIENT
  Age: 83 Year
  Sex: Male
  Weight: 62.6 kg

DRUGS (3)
  1. XARELTO [Suspect]
     Active Substance: RIVAROXABAN
     Indication: CEREBROVASCULAR ACCIDENT PROPHYLAXIS
     Dosage: NDC 50458-579-30
     Route: 048
     Dates: start: 2011
  2. TOLVAPTAN [Concomitant]
     Active Substance: TOLVAPTAN
     Indication: RENAL DISORDER
     Route: 065
  3. XARELTO [Suspect]
     Active Substance: RIVAROXABAN
     Indication: ATRIAL FIBRILLATION
     Dosage: NDC 50458-579-30
     Route: 048
     Dates: start: 2011

REACTIONS (2)
  - Polyp [Not Recovered/Not Resolved]
  - Inappropriate schedule of drug administration [Not Recovered/Not Resolved]

NARRATIVE: CASE EVENT DATE: 201303
